FAERS Safety Report 24177073 (Version 1)
Quarter: 2024Q3

REPORT INFORMATION
  Report Type: Spontaneous
  Country: US (occurrence: US)
  Receive Date: 20240806
  Receipt Date: 20240806
  Transmission Date: 20241016
  Serious: Yes (Other)
  Sender: AMNEAL
  Company Number: US-AMNEAL-2023-AMRX-03405

PATIENT
  Age: 35 Year
  Sex: Male
  Weight: 145.13 kg

DRUGS (1)
  1. BACLOFEN [Suspect]
     Active Substance: BACLOFEN
     Indication: Product used for unknown indication
     Dosage: CONCENTRATION: 2000 MCG/ML, DOSE: 320 MCG/DAY
     Route: 065

REACTIONS (1)
  - Implant site infection [Not Recovered/Not Resolved]

NARRATIVE: CASE EVENT DATE: 20230927
